FAERS Safety Report 11639023 (Version 1)
Quarter: 2015Q4

REPORT INFORMATION
  Report Type: Spontaneous
  Country: US (occurrence: US)
  Receive Date: 20151018
  Receipt Date: 20151018
  Transmission Date: 20160304
  Serious: No
  Sender: FDA-Public Use
  Company Number: US-009507513-1510USA005284

PATIENT
  Age: 63 Year
  Sex: Female

DRUGS (4)
  1. VAGIFEM [Concomitant]
     Active Substance: ESTRADIOL
  2. VALACYCLOVIR HYDROCHLORIDE. [Concomitant]
     Active Substance: VALACYCLOVIR HYDROCHLORIDE
  3. BELSOMRA [Suspect]
     Active Substance: SUVOREXANT
     Indication: INSOMNIA
     Dosage: 1 HALF OF TABLET
     Route: 048
     Dates: start: 20151006, end: 20151007
  4. BELSOMRA [Suspect]
     Active Substance: SUVOREXANT
     Dosage: BREAK A 20 MG TABLET INTO A 5 MG DOSE
     Route: 048
     Dates: start: 20151008, end: 20151009

REACTIONS (7)
  - Abnormal dreams [Unknown]
  - Wrong technique in product usage process [Unknown]
  - Fatigue [Unknown]
  - Drug ineffective [Unknown]
  - Wrong technique in product usage process [Unknown]
  - Dry mouth [Unknown]
  - Drug prescribing error [Unknown]

NARRATIVE: CASE EVENT DATE: 201510
